FAERS Safety Report 5526108-5 (Version None)
Quarter: 2007Q4

REPORT INFORMATION
  Report Type: 
  Country: None (occurrence: None)
  Receive Date: 20071120
  Receipt Date: 20071107
  Transmission Date: 20080405
  Serious: Yes (Hospitalization)
  Sender: FDA-Public Use
  Company Number: 2007-167112-NL

PATIENT
  Age: 61 Year
  Sex: Female

DRUGS (3)
  1. MIRTAZAPINE [Suspect]
     Dosage: 30 MG ORAL
     Route: 048
  2. FENTANYL [Concomitant]
  3. PREGABALIN [Concomitant]

REACTIONS (3)
  - BLOOD ELECTROLYTES ABNORMAL [None]
  - MYOCLONUS [None]
  - TREMOR [None]
